FAERS Safety Report 15756291 (Version 1)
Quarter: 2018Q4

REPORT INFORMATION
  Report Type: Report from Study
  Country: MX (occurrence: MX)
  Receive Date: 20181224
  Receipt Date: 20181224
  Transmission Date: 20190205
  Serious: Yes (Life-Threatening)
  Sender: FDA-Public Use
  Company Number: PHHY2018MX193826

PATIENT
  Sex: Female

DRUGS (1)
  1. CO-DIOVAN [Suspect]
     Active Substance: HYDROCHLOROTHIAZIDE\VALSARTAN
     Indication: METABOLIC SYNDROME
     Dosage: 1 DF, QD
     Route: 048
     Dates: start: 2005, end: 20181220

REACTIONS (2)
  - Hypertensive crisis [Unknown]
  - Product use in unapproved indication [Unknown]
